FAERS Safety Report 9880919 (Version 2)
Quarter: 2014Q1

REPORT INFORMATION
  Report Type: Spontaneous
  Country: US (occurrence: US)
  Receive Date: 20140207
  Receipt Date: 20140331
  Transmission Date: 20141002
  Serious: No
  Sender: FDA-Public Use
  Company Number: US-PFIZER INC-2014033922

PATIENT
  Sex: Male

DRUGS (4)
  1. DEPO-TESTOSTERONE [Suspect]
     Indication: BLOOD TESTOSTERONE ABNORMAL
     Dosage: 200 MG, ONCE IN TEN DAYS
     Route: 030
     Dates: start: 20130823
  2. WELLBUTRIN [Concomitant]
     Dosage: UNK
  3. CIALIS [Concomitant]
     Dosage: UNK
  4. NASONEX [Concomitant]
     Dosage: UNK

REACTIONS (2)
  - Wrong technique in drug usage process [Unknown]
  - Injection site pain [Unknown]
